FAERS Safety Report 4760823-6 (Version None)
Quarter: 2005Q3

REPORT INFORMATION
  Report Type: 
  Country: None (occurrence: None)
  Receive Date: 20050901
  Receipt Date: 20050721
  Transmission Date: 20060218
  Serious: Yes (Hospitalization)
  Sender: FDA-Public Use
  Company Number: RENA-11504

PATIENT
  Age: 19 Year
  Sex: Male
  Weight: 60 kg

DRUGS (8)
  1. RENAGEL [Suspect]
     Indication: HYPERPHOSPHATAEMIA
  2. HECTOROL [Suspect]
     Indication: HYPERPARATHYROIDISM
     Dosage: 8 MCG 3X/W IV
     Route: 042
     Dates: start: 20030804, end: 20050804
  3. DESFERRAL [Concomitant]
  4. NORVASC [Concomitant]
  5. PHENOBARBITAL TAB [Concomitant]
  6. BENAZEPRIL HCL [Concomitant]
  7. DILANTIN [Concomitant]
  8. FOLIC ACID [Concomitant]

REACTIONS (5)
  - CHEST DISCOMFORT [None]
  - DYSPNOEA [None]
  - ELECTROCARDIOGRAM ABNORMAL [None]
  - FLUSHING [None]
  - ISCHAEMIA [None]
